FAERS Safety Report 6681073-2 (Version None)
Quarter: 2010Q2

REPORT INFORMATION
  Report Type: 
  Country: None (occurrence: None)
  Receive Date: 20100412
  Receipt Date: 20100326
  Transmission Date: 20101027
  Serious: Yes (Other)
  Sender: FDA-Public Use
  Company Number: 2010001062

PATIENT
  Age: 67 Year
  Sex: Male

DRUGS (12)
  1. TARCEVA [Suspect]
     Indication: LUNG NEOPLASM MALIGNANT
     Dosage: (150 MG), ORAL
     Route: 048
     Dates: start: 20091203, end: 20091210
  2. MORPHINE SULFATE [Concomitant]
  3. GABAPENTIN [Concomitant]
  4. PREGABALIN [Concomitant]
  5. ZALEPLON [Concomitant]
  6. CITALOPRAM HYDROBROMIDE [Concomitant]
  7. BUSPIRONE HCL [Concomitant]
  8. FENTANYL-100 [Concomitant]
  9. QUININE SULFATE [Concomitant]
  10. RANATIDINE (RANITIDINE) [Concomitant]
  11. PREDNISOLONE [Concomitant]
  12. ORAMORPH SR [Concomitant]

REACTIONS (3)
  - DIARRHOEA [None]
  - DRUG INTERACTION [None]
  - SOMNOLENCE [None]
